FAERS Safety Report 6235343-2 (Version None)
Quarter: 2009Q2

REPORT INFORMATION
  Report Type: 
  Country: None (occurrence: None)
  Receive Date: 20090615
  Receipt Date: 20090529
  Transmission Date: 20091009
  Serious: Yes (Hospitalization)
  Sender: FDA-Public Use
  Company Number: DE-2009-1239

PATIENT
  Sex: Male
  Weight: 87 kg

DRUGS (10)
  1. NAVELBINE [Suspect]
     Indication: NON-SMALL CELL LUNG CANCER
     Dates: start: 20090416, end: 20090519
  2. CISPLATIN [Suspect]
     Indication: NON-SMALL CELL LUNG CANCER
     Dates: start: 20090201, end: 20090519
  3. PACLITAXEL [Suspect]
     Indication: NON-SMALL CELL LUNG CANCER
     Dates: start: 20090201, end: 20090323
  4. RADIOTHERAPY [Suspect]
     Indication: NON-SMALL CELL LUNG CANCER
     Dates: start: 20090416, end: 20090527
  5. ENOXAPARIN SODIUM [Concomitant]
  6. PANTOZOL [Concomitant]
  7. TEPILTA [Concomitant]
  8. NULYTELY [Concomitant]
  9. DIFLUCAN [Concomitant]
  10. TALVOSILEN [Concomitant]

REACTIONS (6)
  - DYSPHAGIA [None]
  - FLUID INTAKE REDUCED [None]
  - HYPOPHAGIA [None]
  - LUNG INFILTRATION [None]
  - OESOPHAGEAL CANDIDIASIS [None]
  - PNEUMONIA [None]
